FAERS Safety Report 6444392-0 (Version None)
Quarter: 2009Q4

REPORT INFORMATION
  Report Type: 
  Country: None (occurrence: None)
  Receive Date: 20091118
  Receipt Date: 20091109
  Transmission Date: 20100525
  Serious: Yes (Other)
  Sender: FDA-Public Use
  Company Number: FR-TEVA-214661ISR

PATIENT
  Age: 60 Year
  Sex: Female

DRUGS (5)
  1. CARBAMAZEPINE [Suspect]
  2. TOPIRAMATE [Concomitant]
  3. VALPROATE SODIUM [Concomitant]
  4. CLOBAZAM [Concomitant]
  5. CLONAZEPAM [Concomitant]

REACTIONS (1)
  - EPILEPSY [None]
